FAERS Safety Report 4705493-8 (Version None)
Quarter: 2005Q2

REPORT INFORMATION
  Report Type: 
  Country: None (occurrence: None)
  Receive Date: 20050629
  Receipt Date: 20040820
  Transmission Date: 20051028
  Serious: Yes (Hospitalization)
  Sender: FDA-Public Use
  Company Number: 200113739US

PATIENT
  Age: 43 Year
  Sex: Female

DRUGS (14)
  1. CISPLATIN [Suspect]
     Indication: GASTRIC CANCER
     Dosage: 133 MG CYC; IV
     Route: 042
     Dates: start: 20010222, end: 20010429
  2. FLUOROURACIL [Suspect]
     Indication: GASTRIC CANCER
     Dosage: 1360 MG CYC; IV
     Route: 042
     Dates: start: 20010222, end: 20010429
  3. FENTANYL [Concomitant]
  4. PREVACID [Concomitant]
  5. ROXANOL [Concomitant]
  6. ZOSYN [Concomitant]
  7. DEXTROSE [Concomitant]
  8. HEPARIN [Concomitant]
  9. RESTORIL [Concomitant]
  10. CELEXA [Concomitant]
  11. NEUTRAPHOS [Concomitant]
  12. ERYTHROMYCIN [Concomitant]
  13. PROPRANOLOL [Concomitant]
  14. MAGNESIUM OXIDE [Concomitant]

REACTIONS (13)
  - BLOOD ELECTROLYTES ABNORMAL [None]
  - CANCER PAIN [None]
  - CHILLS [None]
  - DIARRHOEA [None]
  - EATING DISORDER [None]
  - FATIGUE [None]
  - HYPOCALCAEMIA [None]
  - HYPOKALAEMIA [None]
  - HYPOMAGNESAEMIA [None]
  - NAUSEA [None]
  - NEUTROPENIA [None]
  - PLATELET COUNT DECREASED [None]
  - VOMITING [None]
